FAERS Safety Report 25524728 (Version 1)
Quarter: 2025Q3

REPORT INFORMATION
  Report Type: Spontaneous
  Country: US (occurrence: None)
  Receive Date: 20250706
  Receipt Date: 20250706
  Transmission Date: 20251021
  Serious: Yes (Other)
  Sender: FDA-CTU
  Company Number: None

PATIENT
  Age: 37 Year
  Sex: Male
  Weight: 76.5 kg

DRUGS (5)
  1. CIPROFLOXACIN [Suspect]
     Active Substance: CIPROFLOXACIN
     Indication: Pelvic pain
     Dosage: OTHER QUANTITY : 14 TABLET(S);?FREQUENCY : TWICE A DAY;?
     Route: 048
     Dates: start: 20250118, end: 20250123
  2. SEA MOSS [Concomitant]
  3. Pine Pollen [Concomitant]
  4. FISH OILS [Concomitant]
  5. VITAMIN D/K2 [Concomitant]

REACTIONS (5)
  - Neuralgia [None]
  - Insomnia [None]
  - Suicidal ideation [None]
  - Decreased appetite [None]
  - Tendon pain [None]

NARRATIVE: CASE EVENT DATE: 20250118
